FAERS Safety Report 5778512-8 (Version None)
Quarter: 2008Q2

REPORT INFORMATION
  Report Type: 
  Country: None (occurrence: None)
  Receive Date: 20080619
  Receipt Date: 20080616
  Transmission Date: 20081010
  Serious: Yes (Other)
  Sender: FDA-Public Use
  Company Number: BR-ASTRAZENECA-2008UW12176

PATIENT
  Age: 67 Year
  Sex: Female
  Weight: 95 kg

DRUGS (6)
  1. SYMBICORT [Suspect]
     Indication: BRONCHITIS
     Dosage: 320/9 UG
     Route: 055
     Dates: start: 20080501
  2. RENITEC [Concomitant]
     Indication: HYPERTENSION
     Route: 048
  3. GLUCOFORMIN [Concomitant]
     Indication: DIABETES MELLITUS
     Route: 048
  4. PURAN T4 [Concomitant]
     Route: 048
  5. LORAX [Concomitant]
     Indication: RELAXATION THERAPY
     Route: 048
  6. ANTAK [Concomitant]
     Indication: GASTROINTESTINAL DISORDER
     Route: 048

REACTIONS (5)
  - BRONCHITIS [None]
  - DYSGEUSIA [None]
  - INSOMNIA [None]
  - OVERDOSE [None]
  - TREMOR [None]
